FAERS Safety Report 9511625 (Version 6)
Quarter: 2014Q4

REPORT INFORMATION
  Report Type: Report from Study
  Country: CA (occurrence: CA)
  Receive Date: 20130910
  Receipt Date: 20141021
  Transmission Date: 20150529
  Serious: Yes (Death, Hospitalization)
  Sender: FDA-Public Use
  Company Number: PHHY2012CA028728

PATIENT
  Age: 60 Year
  Sex: Male

DRUGS (1)
  1. SANDOSTATIN LAR DEPOT [Suspect]
     Active Substance: OCTREOTIDE ACETATE
     Indication: CARCINOID TUMOUR OF THE SMALL BOWEL
     Dosage: 30 MG, EVERY 4 WEEKS
     Route: 030
     Dates: start: 20080307

REACTIONS (13)
  - Bile duct obstruction [Unknown]
  - Ascites [Unknown]
  - Influenza like illness [Unknown]
  - Amnesia [Unknown]
  - Malaise [Unknown]
  - Blood pressure increased [Unknown]
  - Infection [Unknown]
  - Diarrhoea [Unknown]
  - Death [Fatal]
  - Pyrexia [Unknown]
  - Heart rate increased [Unknown]
  - Haematochezia [Unknown]
  - Weight decreased [Unknown]

NARRATIVE: CASE EVENT DATE: 20140605
